FAERS Safety Report 4310734-5 (Version None)
Quarter: 2004Q1

REPORT INFORMATION
  Report Type: 
  Country: None (occurrence: None)
  Receive Date: 20040302
  Receipt Date: 20040217
  Transmission Date: 20041129
  Serious: Yes (Hospitalization)
  Sender: FDA-Public Use
  Company Number: RENA-10907

PATIENT
  Age: 56 Year
  Sex: Male

DRUGS (9)
  1. RENAGEL - TABLET 250 MG [Suspect]
     Indication: HYPERPHOSPHATAEMIA
     Dosage: 0.75 G TID PO
     Route: 048
     Dates: start: 20040109, end: 20040119
  2. RENAGEL - TABLET 250 MG [Suspect]
     Indication: HYPERPHOSPHATAEMIA
     Dosage: 0.5 G TID PO
     Route: 048
     Dates: start: 20030823, end: 20040108
  3. LOXOPROFEN SODIUM [Suspect]
     Dosage: 120 MG TID PO
     Route: 048
     Dates: start: 20040112, end: 20040116
  4. SOFALCONE [Concomitant]
  5. CILNIDIPINE [Concomitant]
  6. FALECALCITRIOL [Concomitant]
  7. IMIDAPRIL HYDROCHLORIDE [Concomitant]
  8. LOSARTAN POTASSIUM [Concomitant]
  9. COLCHICINE [Concomitant]

REACTIONS (5)
  - DUODENAL ULCER [None]
  - GOUT [None]
  - HAEMATOCRIT DECREASED [None]
  - HAEMOGLOBIN DECREASED [None]
  - MELAENA [None]
